FAERS Safety Report 15402138 (Version 1)
Quarter: 2018Q3

REPORT INFORMATION
  Report Type: Spontaneous
  Country: FR (occurrence: FR)
  Receive Date: 20180919
  Receipt Date: 20180919
  Transmission Date: 20181010
  Serious: Yes (Hospitalization)
  Sender: FDA-Public Use
  Company Number: FR-PFIZER INC-2018372447

PATIENT
  Age: 30 Year
  Sex: Male

DRUGS (7)
  1. CANNABIS AND RESIN [Suspect]
     Active Substance: CANNABIS SATIVA SUBSP. INDICA TOP
     Dosage: 1 DF, 1X/DAY
     Route: 055
     Dates: start: 2004
  2. ALPRAZOLAM. [Suspect]
     Active Substance: ALPRAZOLAM
     Dosage: UNK
  3. SERESTA [Suspect]
     Active Substance: OXAZEPAM
     Dosage: UNK
  4. SUBUTEX [Suspect]
     Active Substance: BUPRENORPHINE HYDROCHLORIDE
     Dosage: UNK
     Route: 045
     Dates: start: 2006
  5. TOBACCO [Suspect]
     Active Substance: TOBACCO LEAF
     Dosage: 20 CIGARETTES/DAY
     Route: 055
     Dates: start: 2002
  6. COCAINE [Suspect]
     Active Substance: COCAINE
     Dosage: NA
     Route: 045
     Dates: start: 2006
  7. HEROIN [Suspect]
     Active Substance: DIAMORPHINE
     Dosage: 5 TO 10X/DAY
     Route: 045
     Dates: start: 2006, end: 2013

REACTIONS (3)
  - Intentional product misuse [Not Recovered/Not Resolved]
  - Drug abuse [Recovered/Resolved]
  - Drug dependence [Not Recovered/Not Resolved]
